FAERS Safety Report 25079783 (Version 3)
Quarter: 2025Q2

REPORT INFORMATION
  Report Type: Spontaneous
  Country: LT (occurrence: LT)
  Receive Date: 20250314
  Receipt Date: 20250404
  Transmission Date: 20250717
  Serious: Yes (Hospitalization)
  Sender: FERRING
  Company Number: None

PATIENT

DRUGS (5)
  1. PICOPREP [Suspect]
     Active Substance: ANHYDROUS CITRIC ACID\MAGNESIUM OXIDE\SODIUM PICOSULFATE
     Indication: Bowel preparation
     Dosage: 2 DOSAGE FORM, DAILY
     Route: 048
     Dates: start: 20250210, end: 20250210
  2. AMLODIPINE BESYLATE [Concomitant]
     Active Substance: AMLODIPINE BESYLATE
     Indication: Hypertension
     Route: 048
     Dates: start: 202412
  3. LEVOTHYROXINE SODIUM [Concomitant]
     Active Substance: LEVOTHYROXINE SODIUM
     Indication: Hypothyroidism
     Dosage: 1 DOSAGE FORM, DAILY
     Route: 048
     Dates: start: 2010
  4. MOXONIDINE [Concomitant]
     Active Substance: MOXONIDINE
     Indication: Hypertension
     Dosage: 1 TABLET PER DAY IN THE EVENING
     Route: 048
     Dates: start: 202412
  5. BISOPROLOL FUMARATE [Concomitant]
     Active Substance: BISOPROLOL FUMARATE
     Indication: Hypertension
     Dosage: 1 TABLET PER DAY IN THE MORNING
     Route: 048
     Dates: start: 202412

REACTIONS (10)
  - Asthenia [Not Recovered/Not Resolved]
  - Hypertension [Recovered/Resolved]
  - Electrolyte depletion [Recovered/Resolved]
  - Decreased appetite [Recovering/Resolving]
  - Heart rate irregular [Not Recovered/Not Resolved]
  - Gastrointestinal motility disorder [Recovered/Resolved]
  - Dysgeusia [Recovering/Resolving]
  - Irritability [Not Recovered/Not Resolved]
  - Confusional state [Recovered/Resolved]
  - Vomiting [Recovered/Resolved]

NARRATIVE: CASE EVENT DATE: 20250201
